FAERS Safety Report 5390206-X (Version None)
Quarter: 2007Q3

REPORT INFORMATION
  Report Type: 
  Country: None (occurrence: None)
  Receive Date: 20070718
  Receipt Date: 20070626
  Transmission Date: 20080115
  Serious: Yes (Disabling, Other)
  Sender: FDA-Public Use
  Company Number: US-ROCHE-497213

PATIENT
  Age: 68 Year
  Sex: Female
  Weight: 68 kg

DRUGS (3)
  1. BONIVA [Suspect]
     Indication: OSTEOPOROSIS
     Route: 048
     Dates: start: 20050801, end: 20060801
  2. OSCAL [Concomitant]
     Indication: OSTEOPOROSIS
     Dosage: SHE WAS TAKING OSCAL FOR YEARS.
  3. VITAMINS NOS [Concomitant]

REACTIONS (6)
  - ARTHRITIS [None]
  - BENIGN NEOPLASM [None]
  - MASS [None]
  - PAIN IN JAW [None]
  - SWELLING FACE [None]
  - TOOTH LOSS [None]
